FAERS Safety Report 19665340 (Version 1)
Quarter: 2021Q3

REPORT INFORMATION
  Report Type: Report from Study
  Country: US (occurrence: US)
  Receive Date: 20210805
  Receipt Date: 20210805
  Transmission Date: 20211014
  Serious: No
  Sender: FDA-Public Use
  Company Number: NVSC2021US176717

PATIENT
  Sex: Female

DRUGS (1)
  1. PIQRAY [Suspect]
     Active Substance: ALPELISIB
     Indication: BREAST CANCER
     Dosage: 150 MG, QD (HALF OF ORIGINAL DOSE)
     Route: 065

REACTIONS (7)
  - Nausea [Unknown]
  - Vomiting [Unknown]
  - Dehydration [Unknown]
  - Dizziness [Unknown]
  - Rash [Unknown]
  - Hypotension [Unknown]
  - Blood glucose increased [Unknown]
